FAERS Safety Report 9004969 (Version 1)
Quarter: 2013Q1

REPORT INFORMATION
  Report Type: Spontaneous
  Country: US (occurrence: US)
  Receive Date: 20130109
  Receipt Date: 20130109
  Transmission Date: 20140127
  Serious: Yes (Hospitalization, Other)
  Sender: FDA-Public Use
  Company Number: US-BAYER-2013-001064

PATIENT
  Age: 36 Year
  Sex: Female
  Weight: 75 kg

DRUGS (6)
  1. YAZ [Suspect]
     Indication: PREMENSTRUAL SYNDROME
  2. YASMIN [Suspect]
     Indication: DYSFUNCTIONAL UTERINE BLEEDING
  3. OCELLA [Suspect]
  4. FLUOXETINE HCL [Concomitant]
     Dosage: 20 MG, UNK
  5. AMOX TR POTASSIUM [Concomitant]
     Dosage: 875-125MG
  6. PROZAC [Concomitant]

REACTIONS (5)
  - Deep vein thrombosis [Recovered/Resolved]
  - Pulmonary embolism [Recovered/Resolved]
  - Cholelithiasis [None]
  - Pelvic venous thrombosis [Recovered/Resolved]
  - Off label use [None]
